FAERS Safety Report 12610339 (Version 1)
Quarter: 2016Q3

REPORT INFORMATION
  Report Type: Spontaneous
  Country: US (occurrence: None)
  Receive Date: 20160729
  Receipt Date: 20160729
  Transmission Date: 20161109
  Serious: Yes (Disabling, Other)
  Sender: FDA-Public Use
  Company Number: None

PATIENT
  Age: 55 Year
  Sex: Male
  Weight: 72.58 kg

DRUGS (12)
  1. SIROLIMUS / 1 MG PFIZER [Suspect]
     Active Substance: SIROLIMUS
     Indication: RENAL TRANSPLANT
     Dosage: 1 PILL X DAILY 1 DAILY BY MOUTH
     Route: 048
     Dates: start: 20151001, end: 20160601
  2. PREDNISONE. [Concomitant]
     Active Substance: PREDNISONE
  3. SIROLIMUS / 1 MG PFIZER [Suspect]
     Active Substance: SIROLIMUS
     Indication: PANCREAS TRANSPLANT
     Dosage: 1 PILL X DAILY 1 DAILY BY MOUTH
     Route: 048
     Dates: start: 20151001, end: 20160601
  4. TACROLIMUS. [Concomitant]
     Active Substance: TACROLIMUS
  5. ASPIRIN. [Concomitant]
     Active Substance: ASPIRIN
  6. OMEPRAZOLE. [Concomitant]
     Active Substance: OMEPRAZOLE
  7. CELLCEPT [Concomitant]
     Active Substance: MYCOPHENOLATE MOFETIL\MYCOPHENOLATE MOFETIL HYDROCHLORIDE
  8. CALCITRIOL. [Concomitant]
     Active Substance: CALCITRIOL
  9. COVERA [Concomitant]
     Active Substance: VERAPAMIL HYDROCHLORIDE
  10. SENSIPAR [Concomitant]
     Active Substance: CINACALCET HYDROCHLORIDE
  11. AMITIZA [Concomitant]
     Active Substance: LUBIPROSTONE
  12. VITAMIN D3 [Concomitant]
     Active Substance: CHOLECALCIFEROL

REACTIONS (6)
  - Balance disorder [None]
  - Peripheral swelling [None]
  - Wrist fracture [None]
  - Dysuria [None]
  - Alopecia [None]
  - Fall [None]

NARRATIVE: CASE EVENT DATE: 20151015
